FAERS Safety Report 14282951 (Version 1)
Quarter: 2017Q4

REPORT INFORMATION
  Report Type: Spontaneous
  Country: FR (occurrence: FR)
  Receive Date: 20171213
  Receipt Date: 20171213
  Transmission Date: 20180321
  Serious: Yes (Other)
  Sender: FDA-Public Use
  Company Number: FR-MYLANLABS-2017M1078440

PATIENT
  Age: 75 Year
  Sex: Male
  Weight: 91 kg

DRUGS (3)
  1. ESOMEPRAZOLE [Suspect]
     Active Substance: ESOMEPRAZOLE
     Indication: GASTRITIS
     Dosage: 1 DF, QD
     Route: 065
  2. ESOMEPRAZOLE [Suspect]
     Active Substance: ESOMEPRAZOLE
     Indication: HIATUS HERNIA
  3. GARDENAL [Concomitant]
     Active Substance: PHENOBARBITAL
     Indication: CRANIOTOMY
     Dosage: 2 DF, QD
     Route: 065
     Dates: start: 1960

REACTIONS (3)
  - Abdominal pain upper [Recovered/Resolved]
  - Angina pectoris [Recovered/Resolved]
  - Product substitution issue [Recovered/Resolved]
